FAERS Safety Report 7530994-7 (Version None)
Quarter: 2011Q2

REPORT INFORMATION
  Report Type: 
  Country: None (occurrence: None)
  Receive Date: 20110531
  Receipt Date: 20110516
  Transmission Date: 20111010
  Serious: Yes (Hospitalization)
  Sender: FDA-Public Use
  Company Number: 2011MA005956

PATIENT
  Age: 39 Year
  Sex: Female

DRUGS (1)
  1. FLUOXETINE [Suspect]
     Indication: OBESITY
     Dosage: 10 MG;

REACTIONS (1)
  - COLITIS ISCHAEMIC [None]
